FAERS Safety Report 16960574 (Version 5)
Quarter: 2022Q3

REPORT INFORMATION
  Report Type: Report from Study
  Country: CA (occurrence: CA)
  Receive Date: 20191025
  Receipt Date: 20220707
  Transmission Date: 20221027
  Serious: Yes (Hospitalization)
  Sender: FDA-Public Use
  Company Number: CA-GLAXOSMITHKLINE-CA2019AMR182505

PATIENT

DRUGS (5)
  1. ALBUTEROL SULFATE [Suspect]
     Active Substance: ALBUTEROL SULFATE
     Indication: Product used for unknown indication
     Dosage: UNK (PRN)
  2. MONTELUKAST [Suspect]
     Active Substance: MONTELUKAST SODIUM
     Indication: Product used for unknown indication
     Dosage: 10 MG, QD
     Route: 048
  3. FLUTICASONE FUROATE [Suspect]
     Active Substance: FLUTICASONE FUROATE
     Indication: Product used for unknown indication
     Dosage: 27.5 MG, QD (2 SPRAYS PER NOSTRIL)
  4. SYMBICORT [Suspect]
     Active Substance: BUDESONIDE\FORMOTEROL FUMARATE DIHYDRATE
     Indication: Product used for unknown indication
     Dosage: 2 DF (INHALATIONS), QID
  5. NUCALA [Concomitant]
     Active Substance: MEPOLIZUMAB
     Indication: Asthma
     Dosage: 100 MG
     Route: 042
     Dates: start: 20191101

REACTIONS (6)
  - Asthma [Recovered/Resolved]
  - Sleep disorder due to a general medical condition [Recovered/Resolved]
  - Loss of personal independence in daily activities [Recovering/Resolving]
  - Dyspnoea [Recovered/Resolved]
  - Wheezing [Recovered/Resolved]
  - Therapeutic product effect incomplete [Unknown]
